FAERS Safety Report 7852656-9 (Version None)
Quarter: 2011Q4

REPORT INFORMATION
  Report Type: 
  Country: None (occurrence: None)
  Receive Date: 20111026
  Receipt Date: 20111017
  Transmission Date: 20120403
  Serious: Yes (Hospitalization)
  Sender: FDA-Public Use
  Company Number: CH-GLAXOSMITHKLINE-B0757586A

PATIENT
  Sex: Female

DRUGS (5)
  1. TOPIRAMATE [Concomitant]
     Indication: EPILEPSY
     Dosage: 100MG PER DAY
     Route: 048
  2. VIMPAT [Concomitant]
     Indication: EPILEPSY
     Route: 048
     Dates: start: 20100601
  3. NITRAZEPAM [Concomitant]
     Dosage: 5MG PER DAY
     Route: 048
  4. LAMICTAL [Concomitant]
     Indication: EPILEPSY
     Dosage: 600MG PER DAY
     Route: 048
  5. TROBALT [Suspect]
     Indication: PARTIAL SEIZURES
     Dosage: 300MG PER DAY
     Route: 048
     Dates: start: 20110823, end: 20111011

REACTIONS (5)
  - THINKING ABNORMAL [None]
  - PSYCHOTIC DISORDER [None]
  - HYPOTENSION [None]
  - BURNING SENSATION [None]
  - ATTENTION DEFICIT/HYPERACTIVITY DISORDER [None]
